FAERS Safety Report 10087140 (Version 2)
Quarter: 2014Q2

REPORT INFORMATION
  Report Type: Spontaneous
  Country: US (occurrence: US)
  Receive Date: 20140418
  Receipt Date: 20140617
  Transmission Date: 20141212
  Serious: No
  Sender: FDA-Public Use
  Company Number: US-009507513-1404USA006129

PATIENT
  Age: 72 Year
  Sex: Male

DRUGS (2)
  1. CLARITIN-D-12 [Suspect]
     Indication: SINUS DISORDER
     Dosage: 5MG, BID
     Route: 048
     Dates: start: 20140310, end: 20140312
  2. CLARITIN-D-12 [Suspect]
     Indication: EAR CONGESTION

REACTIONS (1)
  - Drug ineffective [Unknown]
